FAERS Safety Report 16839177 (Version 8)
Quarter: 2021Q2

REPORT INFORMATION
  Report Type: Spontaneous
  Country: PL (occurrence: PL)
  Receive Date: 20190923
  Receipt Date: 20210412
  Transmission Date: 20210716
  Serious: Yes (Other)
  Sender: FDA-Public Use
  Company Number: PL-MYLANLABS-2019M1087838

PATIENT
  Age: 65 Year
  Sex: Female

DRUGS (23)
  1. TRAMADOL. [Suspect]
     Active Substance: TRAMADOL
     Dosage: 37.5 MG, UNK
     Route: 065
  2. DICLOFENAC [Suspect]
     Active Substance: DICLOFENAC
     Indication: ARTHRALGIA
     Dosage: 75 MILLIGRAM, BID
     Route: 061
  3. DICLOFENAC [Suspect]
     Active Substance: DICLOFENAC
     Dosage: 150 MG, BID
     Route: 065
  4. IBUPROFEN. [Suspect]
     Active Substance: IBUPROFEN
     Indication: PAIN
     Dosage: 400 MILLIGRAM, PRN
     Route: 065
  5. IBUPROFEN. [Suspect]
     Active Substance: IBUPROFEN
     Indication: BACK PAIN
     Dosage: 400 MILLIGRAM, QD (AS NEEDED)
     Route: 065
  6. PARACETAMOL [Suspect]
     Active Substance: ACETAMINOPHEN
     Indication: PAIN
     Dosage: 375 MILLIGRAM, UPTP 4 TIMES PER DAY
     Route: 065
  7. PARACETAMOL [Suspect]
     Active Substance: ACETAMINOPHEN
     Dosage: 375 MG, QID
     Route: 065
  8. METAMIZOLE [Suspect]
     Active Substance: METAMIZOLE
     Indication: BACK PAIN
     Dosage: 500 MILLIGRAM, TID IMMEDIATELY
     Route: 065
  9. DICLOFENAC [Suspect]
     Active Substance: DICLOFENAC
     Dosage: UNK, QW
     Route: 061
  10. IBUPROFEN. [Suspect]
     Active Substance: IBUPROFEN
     Indication: ARTHRALGIA
     Dosage: 1500 MG, QD (375 MG, UPTP 4 TIME /DAY   )
     Route: 065
  11. METAMIZOLE [Suspect]
     Active Substance: METAMIZOLE
     Indication: PAIN
     Dosage: 50 MG, UP TO 3 TIMES PER DAY
     Route: 065
  12. DICLOFENAC [Suspect]
     Active Substance: DICLOFENAC
     Indication: BACK PAIN
     Dosage: UNK, Q12H
     Route: 061
  13. TRAMADOL. [Suspect]
     Active Substance: TRAMADOL
     Dosage: UNK
     Route: 065
  14. PARACETAMOL [Suspect]
     Active Substance: ACETAMINOPHEN
     Dosage: 4MCG/L, QD
     Route: 065
  15. PARACETAMOL [Suspect]
     Active Substance: ACETAMINOPHEN
     Dosage: 4 ?G/L, QD
     Route: 065
  16. IBUPROFEN. [Suspect]
     Active Substance: IBUPROFEN
     Dosage: UNK
     Route: 065
  17. TRAMADOL. [Suspect]
     Active Substance: TRAMADOL
     Dosage: 100 MG, BID (200 MG 12 HRS)
     Route: 065
  18. METAMIZOLE [Suspect]
     Active Substance: METAMIZOLE
     Indication: ARTHRALGIA
     Dosage: 50 MG, (UP TO 3 TIMES PER DAY)
     Route: 065
  19. TRAMADOL. [Suspect]
     Active Substance: TRAMADOL
     Dosage: 4 ?G/L, QD
     Route: 065
  20. TRAMADOL. [Suspect]
     Active Substance: TRAMADOL
     Indication: PAIN
     Dosage: 100 MILLIGRAM, QD
     Route: 065
  21. METAMIZOLE [Suspect]
     Active Substance: METAMIZOLE
     Indication: PAIN
     Dosage: 500 MILLIGRAM, QD
     Route: 065
  22. METAMIZOLE [Suspect]
     Active Substance: METAMIZOLE
     Dosage: 500 MILLIGRAM UNK
     Route: 065
  23. DICLOFENAC [Suspect]
     Active Substance: DICLOFENAC
     Indication: PAIN
     Dosage: 150 MG, QD
     Route: 061

REACTIONS (17)
  - Spinal cord compression [Unknown]
  - Intervertebral disc disorder [Unknown]
  - Abdominal pain upper [Unknown]
  - Osteoarthritis [Unknown]
  - Dyspepsia [Unknown]
  - Arthropathy [Unknown]
  - Nausea [Recovered/Resolved]
  - Off label use [Unknown]
  - Back pain [Recovering/Resolving]
  - Muscle tone disorder [Unknown]
  - Abdominal pain [Recovering/Resolving]
  - Heart rate increased [Unknown]
  - Dry mouth [Recovered/Resolved]
  - Bone density decreased [Unknown]
  - Oedema peripheral [Unknown]
  - Drug ineffective [Recovering/Resolving]
  - Palpitations [Unknown]
